FAERS Safety Report 25743529 (Version 2)
Quarter: 2025Q3

REPORT INFORMATION
  Report Type: Spontaneous
  Country: CN (occurrence: CN)
  Receive Date: 20250831
  Receipt Date: 20250903
  Transmission Date: 20251021
  Serious: Yes (Other)
  Sender: ALEXION PHARMACEUTICALS
  Company Number: CN-ASTRAZENECA-202508GLO022403CN

PATIENT
  Age: 73 Year
  Sex: Female

DRUGS (2)
  1. OSIMERTINIB [Suspect]
     Active Substance: OSIMERTINIB
     Indication: Lung adenocarcinoma stage IV
     Dosage: 80 MILLIGRAM, QD
     Route: 065
     Dates: start: 202107, end: 202201
  2. GEFITINIB [Suspect]
     Active Substance: GEFITINIB
     Indication: Lung adenocarcinoma stage IV
     Dosage: 250 MILLIGRAM, QD
     Route: 065
     Dates: start: 202009, end: 202106

REACTIONS (5)
  - Malignant neoplasm progression [Unknown]
  - Acquired gene mutation [Not Recovered/Not Resolved]
  - Drug resistance [Unknown]
  - Rash [Unknown]
  - Diarrhoea [Unknown]
